APPROVED DRUG PRODUCT: SIMVASTATIN
Active Ingredient: SIMVASTATIN
Strength: 10MG
Dosage Form/Route: TABLET;ORAL
Application: A078735 | Product #002 | TE Code: AB
Applicant: OXFORD PHARMACEUTICALS LLC
Approved: Aug 30, 2010 | RLD: No | RS: No | Type: RX